FAERS Safety Report 10028406 (Version 1)
Quarter: 2014Q1

REPORT INFORMATION
  Report Type: Spontaneous
  Country: CZ (occurrence: CZ)
  Receive Date: 20140321
  Receipt Date: 20140321
  Transmission Date: 20141002
  Serious: Yes (Other)
  Sender: FDA-Public Use
  Company Number: CZ-BAYER-2014-040496

PATIENT
  Age: 25 Year
  Sex: Female

DRUGS (5)
  1. ACETYLSALICYLIC ACID({=100 MG) [Suspect]
     Dosage: 100 MG/D,
  2. HEPARIN [Concomitant]
     Dosage: 3800 IU PER DAY
     Route: 058
  3. BETAMETHASONE [BETAMETHASONE] [Concomitant]
     Indication: FOETAL DISORDER
     Dosage: 12 MG TWO DOSES
     Route: 030
  4. AZATHIOPRINE [Concomitant]
     Indication: ANTIPHOSPHOLIPID SYNDROME
  5. HYDROXYCHLOROQUINE [Concomitant]
     Indication: ANTIPHOSPHOLIPID SYNDROME

REACTIONS (3)
  - Premature delivery [None]
  - Foetal growth restriction [None]
  - Maternal exposure during pregnancy [None]
